FAERS Safety Report 18309255 (Version 2)
Quarter: 2020Q4

REPORT INFORMATION
  Report Type: Spontaneous
  Country: US (occurrence: US)
  Receive Date: 20200924
  Receipt Date: 20201022
  Transmission Date: 20210113
  Serious: No
  Sender: FDA-Public Use
  Company Number: US-ELI_LILLY_AND_COMPANY-US202008010849

PATIENT
  Age: 57 Year
  Sex: Male

DRUGS (5)
  1. TYLENOL EXTRA STRENGTH [Concomitant]
     Active Substance: ACETAMINOPHEN
     Indication: HEADACHE
     Dosage: UNK UNK, UNKNOWN
     Route: 065
  2. CAFFEINE. [Concomitant]
     Active Substance: CAFFEINE
     Indication: HEADACHE
     Dosage: UNK UNK, UNKNOWN
     Route: 065
  3. ACETAMINOPHEN. [Concomitant]
     Active Substance: ACETAMINOPHEN
     Indication: HEADACHE
     Dosage: UNK UNK, UNKNOWN
     Route: 065
  4. EMGALITY [Suspect]
     Active Substance: GALCANEZUMAB-GNLM
     Indication: HEADACHE
     Dosage: 120 MG, UNKNOWN
     Route: 058
     Dates: start: 20200825
  5. EMGALITY [Suspect]
     Active Substance: GALCANEZUMAB-GNLM
     Dosage: 120 MG, UNKNOWN
     Route: 058

REACTIONS (4)
  - Drug ineffective [Unknown]
  - Headache [Unknown]
  - Underdose [Unknown]
  - Injection site haemorrhage [Recovered/Resolved]

NARRATIVE: CASE EVENT DATE: 20200825
